FAERS Safety Report 7204403-1 (Version None)
Quarter: 2010Q4

REPORT INFORMATION
  Report Type: 
  Country: None (occurrence: None)
  Receive Date: 20101230
  Receipt Date: 20101221
  Transmission Date: 20110411
  Serious: Yes (Other)
  Sender: FDA-Public Use
  Company Number: US-JNJFOC-20101107734

PATIENT
  Sex: Male
  Weight: 19.5 kg

DRUGS (2)
  1. TOPAMAX [Suspect]
     Indication: CONVULSION
     Route: 048
  2. HUMULIN INSULIN [Suspect]
     Indication: DIABETES MELLITUS
     Route: 058

REACTIONS (5)
  - AGGRESSION [None]
  - DECREASED EYE CONTACT [None]
  - DISTURBANCE IN ATTENTION [None]
  - DISTURBANCE IN SOCIAL BEHAVIOUR [None]
  - SOCIAL PROBLEM [None]
